FAERS Safety Report 7267413-4 (Version None)
Quarter: 2011Q1

REPORT INFORMATION
  Report Type: 
  Country: None (occurrence: None)
  Receive Date: 20110201
  Receipt Date: 20110118
  Transmission Date: 20110831
  Serious: Yes (Hospitalization)
  Sender: FDA-Public Use
  Company Number: KR-TYCO HEALTHCARE/MALLINCKRODT-T201002292

PATIENT
  Age: 68 Year
  Sex: Male

DRUGS (1)
  1. EXALGO [Suspect]
     Indication: PAIN MANAGEMENT
     Dosage: 8 MG, QD
     Route: 048
     Dates: start: 20101030, end: 20101101

REACTIONS (1)
  - COMA HEPATIC [None]
